FAERS Safety Report 8386803-X (Version None)
Quarter: 2012Q2

REPORT INFORMATION
  Report Type: 
  Country: None (occurrence: None)
  Receive Date: 20120525
  Receipt Date: 20120515
  Transmission Date: 20120825
  Serious: Yes (Hospitalization, Other)
  Sender: FDA-Public Use
  Company Number: FR-BRISTOL-MYERS SQUIBB COMPANY-16598351

PATIENT
  Age: 88 Year
  Sex: Female

DRUGS (8)
  1. COUMADIN [Suspect]
     Indication: PULMONARY EMBOLISM
     Dosage: 2/D FROM 11APR12 INCREASED TO 4MG/DAY
     Route: 048
     Dates: start: 20120301, end: 20120420
  2. ALPRAZOLAM [Concomitant]
  3. LOVENOX [Suspect]
     Dosage: 1 DF:4000IU/0.4ML
     Route: 058
     Dates: end: 20120420
  4. BISOPROLOL FUMARATE [Concomitant]
  5. IMOVANE [Concomitant]
  6. ACETAMINOPHEN [Concomitant]
  7. LAMICTAL [Concomitant]
  8. TRANSIPEG [Concomitant]

REACTIONS (3)
  - FALL [None]
  - INTERNATIONAL NORMALISED RATIO DECREASED [None]
  - CEREBRAL HAEMATOMA [None]
